FAERS Safety Report 16291211 (Version 1)
Quarter: 2019Q2

REPORT INFORMATION
  Report Type: Report from Study
  Country: IT (occurrence: IT)
  Receive Date: 20190509
  Receipt Date: 20190509
  Transmission Date: 20190711
  Serious: Yes (Other)
  Sender: FDA-Public Use
  Company Number: IT-EISAI MEDICAL RESEARCH-EC-2019-056072

PATIENT
  Age: 77 Year
  Sex: Female

DRUGS (7)
  1. DONEPEZIL. [Suspect]
     Active Substance: DONEPEZIL
     Indication: DEMENTIA ALZHEIMER^S TYPE
     Dosage: DOSE AND FREQUENCY UNKNOWN
     Route: 048
     Dates: start: 2018, end: 2019
  2. VIPDOMET [Concomitant]
     Active Substance: ALOGLIPTIN BENZOATE\METFORMIN HYDROCHLORIDE
  3. TORVAST [Concomitant]
     Active Substance: ATORVASTATIN
  4. CARDIOASPIRIN [Concomitant]
     Active Substance: ASPIRIN
  5. PAROXETINE. [Concomitant]
     Active Substance: PAROXETINE
  6. COLECALCIFEROL [Concomitant]
     Active Substance: CHOLECALCIFEROL
  7. XANAX [Concomitant]
     Active Substance: ALPRAZOLAM

REACTIONS (5)
  - Speech disorder [Not Recovered/Not Resolved]
  - Anxiety [Not Recovered/Not Resolved]
  - Arthralgia [Not Recovered/Not Resolved]
  - Agitation [Not Recovered/Not Resolved]
  - Chest pain [Not Recovered/Not Resolved]

NARRATIVE: CASE EVENT DATE: 20190318
